FAERS Safety Report 4900014-9 (Version None)
Quarter: 2006Q1

REPORT INFORMATION
  Report Type: 
  Country: None (occurrence: None)
  Receive Date: 20060201
  Receipt Date: 20060123
  Transmission Date: 20060701
  Serious: Yes (Other)
  Sender: FDA-Public Use
  Company Number: 2006010335

PATIENT
  Age: 55 Year
  Sex: Female

DRUGS (4)
  1. PROVERA [Suspect]
     Indication: HORMONE REPLACEMENT THERAPY
     Dosage: ORAL
     Route: 048
     Dates: start: 19931208, end: 19941223
  2. PREMPRO [Suspect]
     Indication: HORMONE REPLACEMENT THERAPY
     Dates: start: 19990526, end: 20031207
  3. PREMPHASE 14/14 [Suspect]
     Indication: HORMONE REPLACEMENT THERAPY
     Dates: start: 19990526, end: 20031207
  4. LOESTRIN 24 [Suspect]
     Indication: HORMONE REPLACEMENT THERAPY
     Dates: start: 19940901, end: 19990401

REACTIONS (1)
  - BREAST CANCER FEMALE [None]
